FAERS Safety Report 20169839 (Version 3)
Quarter: 2022Q1

REPORT INFORMATION
  Report Type: Spontaneous
  Country: CA (occurrence: CA)
  Receive Date: 20211210
  Receipt Date: 20220215
  Transmission Date: 20220423
  Serious: Yes (Other)
  Sender: FDA-Public Use
  Company Number: CA-PFIZER INC-2021846658

PATIENT
  Age: 58 Year
  Sex: Female

DRUGS (18)
  1. SOMAVERT [Suspect]
     Active Substance: PEGVISOMANT
     Indication: Acromegaly
     Dosage: 30 MG, 1X/DAY
     Route: 058
     Dates: start: 20110729, end: 2018
  2. SOMAVERT [Suspect]
     Active Substance: PEGVISOMANT
     Dosage: 35 MG, 1X/DAY
     Route: 058
     Dates: start: 2018, end: 2019
  3. SOMAVERT [Suspect]
     Active Substance: PEGVISOMANT
     Dosage: 40 MG, 1X/DAY
     Route: 058
     Dates: start: 2019, end: 2020
  4. SOMAVERT [Suspect]
     Active Substance: PEGVISOMANT
     Dosage: 30 MG, 1X/DAY
     Route: 058
     Dates: start: 2020
  5. AMLODIPINE [Concomitant]
     Active Substance: AMLODIPINE BESYLATE
     Dosage: 10 MG, 2X/DAY
     Route: 048
  6. ONEALFA [Concomitant]
     Active Substance: ALFACALCIDOL
     Dosage: 0.25 MCG 3X WEEKLY
     Route: 048
  7. REPLAVITE [ASCORBIC ACID;BIOTIN;CALCIUM PANTOTHENATE;CYANOCOBALAMIN;FO [Concomitant]
     Dosage: 1 TABLET
     Route: 048
  8. DOCUSATE [Concomitant]
     Active Substance: DOCUSATE
     Dosage: 200 MG, 2X/DAY
     Route: 048
  9. POLYETHYLENE GLYCOL 3350 [Concomitant]
     Active Substance: POLYETHYLENE GLYCOL 3350
     Dosage: 17 G, 1X/DAY
     Route: 048
  10. VITAMIN C [Concomitant]
     Active Substance: ASCORBIC ACID
     Dosage: 1 DF, 1X/DAY
     Route: 048
  11. .ALPHA.-TOCOPHEROL [Concomitant]
     Active Substance: .ALPHA.-TOCOPHEROL
     Dosage: 400 IU, 1X/DAY
     Route: 048
  12. SYNTHROID [Concomitant]
     Active Substance: LEVOTHYROXINE SODIUM
     Dosage: 0.088 MG
     Route: 048
  13. INSULIN HUMAN [Concomitant]
     Active Substance: INSULIN HUMAN
     Dosage: 30-70 UU/ML , 18 UNITS SC BEFORE BREAKFAST AND 9 UNITS BEFORE SUPPER
     Route: 058
  14. CALCIUM ACETATE [Concomitant]
     Active Substance: CALCIUM ACETATE
     Dosage: 169 MG, 2 TABLETS TID WITH MEALS AND 1 TABLET WITH SNACKS
     Route: 048
  15. LOSARTAN [Concomitant]
     Active Substance: LOSARTAN
     Dosage: 100 MG, 2X/DAY
     Route: 048
  16. BISOPROLOL [Concomitant]
     Active Substance: BISOPROLOL
     Dosage: 5 MG, 1X/DAY
     Route: 048
  17. JAMP HYDRALAZINE [Concomitant]
     Dosage: 25 MG, 3X/DAY
     Route: 048
  18. RENAGEL [Concomitant]
     Active Substance: SEVELAMER HYDROCHLORIDE
     Dosage: 1 TABLET WITH EACH MEAL
     Route: 048

REACTIONS (4)
  - Oxalosis [Unknown]
  - Renal failure [Unknown]
  - Injection site pruritus [Not Recovered/Not Resolved]
  - Malaise [Unknown]

NARRATIVE: CASE EVENT DATE: 20210101
